FAERS Safety Report 7228910-0 (Version None)
Quarter: 2011Q1

REPORT INFORMATION
  Report Type: 
  Country: None (occurrence: None)
  Receive Date: 20110117
  Receipt Date: 20110106
  Transmission Date: 20110831
  Serious: Yes (Other)
  Sender: FDA-Public Use
  Company Number: CA-JNJFOC-20101206816

PATIENT
  Sex: Male

DRUGS (2)
  1. PREDNISONE [Concomitant]
  2. REMICADE [Suspect]
     Indication: COLITIS ULCERATIVE
     Dosage: RECEIVED 5 INFUSIONS
     Route: 042

REACTIONS (2)
  - HEPATOSPLENIC T-CELL LYMPHOMA [None]
  - DRUG INEFFECTIVE [None]
